FAERS Safety Report 8395448-7 (Version None)
Quarter: 2012Q1

REPORT INFORMATION
  Report Type: 
  Country: None (occurrence: None)
  Receive Date: 20120323
  Receipt Date: 20110330
  Transmission Date: 20120608
  Serious: Yes (Hospitalization)
  Sender: FDA-Public Use
  Company Number: 163-21880-11033511

PATIENT
  Age: 85 Year
  Sex: Female
  Weight: 54.4316 kg

DRUGS (8)
  1. ALLOPURINOL [Concomitant]
  2. ATENOLOL [Concomitant]
  3. REVLIMID [Suspect]
     Indication: MYELODYSPLASTIC SYNDROME
     Dosage: 5 MG, 1 IN 1 D, PO ; 2.5 MG, 1 IN 2 D, PO
     Route: 048
     Dates: start: 20110301
  4. REVLIMID [Suspect]
     Indication: MYELODYSPLASTIC SYNDROME
     Dosage: 5 MG, 1 IN 1 D, PO ; 2.5 MG, 1 IN 2 D, PO
     Route: 048
     Dates: start: 20110129, end: 20110215
  5. FUROSEMIDE [Concomitant]
  6. DOXAZOSIN MESYLATE [Concomitant]
  7. ASPIRIN [Concomitant]
  8. PROCRIT [Concomitant]

REACTIONS (3)
  - CARDIAC FAILURE CONGESTIVE [None]
  - RENAL FAILURE [None]
  - GOUT [None]
